FAERS Safety Report 19390859 (Version 2)
Quarter: 2021Q2

REPORT INFORMATION
  Report Type: Spontaneous
  Country: CN (occurrence: CN)
  Receive Date: 20210608
  Receipt Date: 20210617
  Transmission Date: 20210717
  Serious: Yes (Hospitalization, Other)
  Sender: FDA-Public Use
  Company Number: CN-GLAXOSMITHKLINE-CNCH2021APC035880

PATIENT
  Age: 68 Year
  Sex: Female

DRUGS (2)
  1. JINGFUKANG KELI (TRADITIONAL CHINESE MEDICINE) [Suspect]
     Active Substance: HERBALS
     Indication: SPINAL OSTEOARTHRITIS
     Dosage: 10 G, BID
     Route: 048
     Dates: start: 20201201, end: 20210510
  2. IBUPROFEN. [Suspect]
     Active Substance: IBUPROFEN
     Indication: ARTHRITIS
     Dosage: 400 MG, BID
     Route: 048
     Dates: start: 20200501, end: 20210421

REACTIONS (5)
  - Decreased appetite [Recovering/Resolving]
  - Liver injury [Recovering/Resolving]
  - Hepatic function abnormal [Recovering/Resolving]
  - Poor quality sleep [Recovering/Resolving]
  - Asthenia [Recovering/Resolving]

NARRATIVE: CASE EVENT DATE: 20210525
